FAERS Safety Report 17760626 (Version 1)
Quarter: 2020Q2

REPORT INFORMATION
  Report Type: Spontaneous
  Country: NL (occurrence: NL)
  Receive Date: 20200508
  Receipt Date: 20200508
  Transmission Date: 20200714
  Serious: Yes (Death, Hospitalization, Other)
  Sender: FDA-Public Use
  Company Number: NL-MYLANLABS-2020M1044867

PATIENT
  Sex: Female

DRUGS (13)
  1. ADRIAMYCIN [Suspect]
     Active Substance: DOXORUBICIN HYDROCHLORIDE
     Indication: NEOPLASM PROGRESSION
  2. MITOMYCIN. [Suspect]
     Active Substance: MITOMYCIN
     Indication: THYMOMA MALIGNANT
     Dosage: UNK
  3. VINCRISTINE SULFATE. [Suspect]
     Active Substance: VINCRISTINE SULFATE
     Indication: NEOPLASM PROGRESSION
     Dosage: UNK
     Route: 042
  4. PREDNISONE. [Suspect]
     Active Substance: PREDNISONE
     Indication: THYMOMA MALIGNANT
     Dosage: 20 MG, QD
  5. MITOMYCIN. [Suspect]
     Active Substance: MITOMYCIN
     Indication: NEOPLASM PROGRESSION
  6. VINCRISTINE SULFATE. [Suspect]
     Active Substance: VINCRISTINE SULFATE
     Indication: THYMOMA MALIGNANT
  7. PREDNISONE. [Suspect]
     Active Substance: PREDNISONE
     Dosage: REDUCING DOSES
  8. PROCARBAZINE [Suspect]
     Active Substance: PROCARBAZINE
     Indication: NEOPLASM PROGRESSION
     Dosage: UNK
  9. ADRIAMYCIN [Suspect]
     Active Substance: DOXORUBICIN HYDROCHLORIDE
     Indication: THYMOMA MALIGNANT
     Dosage: UNK
  10. CYCLOPHOSPHAMIDE. [Suspect]
     Active Substance: CYCLOPHOSPHAMIDE
     Indication: THYMOMA MALIGNANT
  11. PROCARBAZINE [Suspect]
     Active Substance: PROCARBAZINE
     Indication: THYMOMA MALIGNANT
  12. PREDNISONE. [Suspect]
     Active Substance: PREDNISONE
     Indication: SYSTEMIC LUPUS ERYTHEMATOSUS
     Dosage: UNK
  13. CYCLOPHOSPHAMIDE. [Suspect]
     Active Substance: CYCLOPHOSPHAMIDE
     Indication: NEOPLASM PROGRESSION
     Dosage: UNK

REACTIONS (9)
  - Respiratory moniliasis [Unknown]
  - Pyrexia [Fatal]
  - Pneumocystis jirovecii infection [Fatal]
  - Pharyngitis [Fatal]
  - Interstitial lung disease [Fatal]
  - Cushingoid [Unknown]
  - Cardiac infection [Fatal]
  - Pneumonia staphylococcal [Fatal]
  - Kidney infection [Fatal]
